FAERS Safety Report 7198124-1 (Version None)
Quarter: 2010Q4

REPORT INFORMATION
  Report Type: 
  Country: None (occurrence: None)
  Receive Date: 20101223
  Receipt Date: 20101223
  Transmission Date: 20110411
  Serious: Yes (Death)
  Sender: FDA-Public Use
  Company Number: None

PATIENT
  Sex: Female
  Weight: 68.0396 kg

DRUGS (3)
  1. DARVOCET [Suspect]
     Indication: BACK PAIN
     Dosage: 500MG 6 -8 HRS
     Dates: start: 20101115, end: 20101122
  2. DARVOCET [Suspect]
     Indication: PAIN
     Dosage: 500MG 6 -8 HRS
     Dates: start: 20101115, end: 20101122
  3. DARVOCET [Suspect]
     Indication: URINARY TRACT INFECTION
     Dosage: 500MG 6 -8 HRS
     Dates: start: 20101115, end: 20101122

REACTIONS (4)
  - BACK PAIN [None]
  - PAIN [None]
  - RESPIRATORY ARREST [None]
  - URINARY TRACT INFECTION [None]
